FAERS Safety Report 10598930 (Version 2)
Quarter: 2015Q4

REPORT INFORMATION
  Report Type: Spontaneous
  Country: US (occurrence: US)
  Receive Date: 20141121
  Receipt Date: 20151118
  Transmission Date: 20160304
  Serious: Yes (Death)
  Sender: FDA-Public Use
  Company Number: US-MYLANLABS-2014M1003721

PATIENT
  Age: 27 Week
  Sex: Female
  Weight: 1.71 kg

DRUGS (9)
  1. ADENOSINE. [Suspect]
     Active Substance: ADENOSINE
     Dosage: 100 ?G/KG, UNK
     Route: 042
  2. AMIODARONE HYDROCHLORIDE INJECTION, 50MG/ML [Suspect]
     Active Substance: AMIODARONE HYDROCHLORIDE
     Indication: HYDROPS FOETALIS
     Dosage: 3.8 ML, ONCE
     Route: 042
     Dates: start: 20140903, end: 20140903
  3. AMIODARONE HYDROCHLORIDE INJECTION, 50MG/ML [Suspect]
     Active Substance: AMIODARONE HYDROCHLORIDE
     Indication: SUPRAVENTRICULAR TACHYCARDIA
  4. ADENOSINE. [Suspect]
     Active Substance: ADENOSINE
     Dosage: 200 ?G, UNK
  5. AMIODARONE HYDROCHLORIDE INJECTION, 50MG/ML [Suspect]
     Active Substance: AMIODARONE HYDROCHLORIDE
     Indication: OFF LABEL USE
  6. ADENOSINE. [Suspect]
     Active Substance: ADENOSINE
     Indication: SUPRAVENTRICULAR TACHYCARDIA
     Dosage: 50 ?G/KG, UNK
     Route: 042
  7. ADENOSINE. [Suspect]
     Active Substance: ADENOSINE
     Dosage: 300 ?G, ONCE
  8. ADENOSINE. [Suspect]
     Active Substance: ADENOSINE
     Dosage: UNK
  9. NEXTERONE [Suspect]
     Active Substance: AMIODARONE HYDROCHLORIDE

REACTIONS (2)
  - Hypotension [Fatal]
  - Bradycardia [Fatal]

NARRATIVE: CASE EVENT DATE: 20140903
